FAERS Safety Report 5229091-5 (Version None)
Quarter: 2007Q1

REPORT INFORMATION
  Report Type: 
  Country: None (occurrence: None)
  Receive Date: 20061201
  Receipt Date: 20061109
  Transmission Date: 20070707
  Serious: No
  Sender: FDA-Public Use
  Company Number: US200608003324

PATIENT
  Age: 60 Year
  Sex: Female

DRUGS (8)
  1. CYMBALTA [Suspect]
     Indication: FIBROMYALGIA
     Dosage: 30 MG, 2/D
     Dates: start: 20060810
  2. VASOTEC [Concomitant]
  3. LORAZEPAM [Concomitant]
  4. IBUPROFEN [Concomitant]
  5. AMBIEN [Concomitant]
  6. PAROXETINE [Concomitant]
  7. COMBIVENT /GFR/ (IPRATROPIUM BROMIDE, SALBUTAMOL SULFATE) [Concomitant]
  8. ADVAIR DISKUS 100/50 [Concomitant]

REACTIONS (6)
  - ABNORMAL DREAMS [None]
  - FEELING ABNORMAL [None]
  - INSOMNIA [None]
  - POOR QUALITY SLEEP [None]
  - SOMNOLENCE [None]
  - VISUAL BRIGHTNESS [None]
